FAERS Safety Report 6965576-9 (Version None)
Quarter: 2010Q3

REPORT INFORMATION
  Report Type: 
  Country: None (occurrence: None)
  Receive Date: 20100903
  Receipt Date: 20100825
  Transmission Date: 20110219
  Serious: Yes (Hospitalization)
  Sender: FDA-Public Use
  Company Number: JP-ROCHE-715834

PATIENT
  Sex: Female
  Weight: 46 kg

DRUGS (11)
  1. HERCEPTIN [Suspect]
     Indication: BREAST CANCER
     Route: 041
     Dates: start: 20090630, end: 20090630
  2. HERCEPTIN [Suspect]
     Route: 041
     Dates: start: 20090717, end: 20090828
  3. TAXOTERE [Concomitant]
     Route: 041
     Dates: start: 20090626, end: 20090828
  4. VOLTAREN [Concomitant]
     Route: 048
     Dates: start: 20090630, end: 20090630
  5. VOLTAREN [Concomitant]
     Route: 048
     Dates: start: 20090704, end: 20090711
  6. ORADOL [Concomitant]
     Dosage: DOSE FORM: LOZENGE, ROUTE: OROPHARINGEAL
     Route: 050
     Dates: start: 20090704, end: 20090711
  7. DEXALTIN [Concomitant]
     Route: 003
     Dates: start: 20090704, end: 20090711
  8. PYDOXAL [Concomitant]
     Route: 048
     Dates: start: 20090704, end: 20090711
  9. FLAVITAN [Concomitant]
     Route: 048
     Dates: start: 20090717, end: 20090828
  10. DECADRON [Concomitant]
     Route: 048
     Dates: start: 20090717, end: 20090720
  11. DECADRON [Concomitant]
     Route: 048
     Dates: start: 20090807, end: 20090810

REACTIONS (2)
  - CARDIAC FAILURE [None]
  - PULMONARY OEDEMA [None]
